FAERS Safety Report 6964386-6 (Version None)
Quarter: 2010Q3

REPORT INFORMATION
  Report Type: 
  Country: None (occurrence: None)
  Receive Date: 20100903
  Receipt Date: 20100820
  Transmission Date: 20110219
  Serious: Yes (Hospitalization)
  Sender: FDA-Public Use
  Company Number: TW-RANBAXY-2010RR-37424

PATIENT
  Age: 66 Year
  Sex: Female

DRUGS (1)
  1. GABAPENTIN [Suspect]
     Dosage: 300 MG, 3/WEEK

REACTIONS (3)
  - DRUG INTOLERANCE [None]
  - DYSARTHRIA [None]
  - MUSCULAR WEAKNESS [None]
